FAERS Safety Report 8318052-5 (Version None)
Quarter: 2012Q2

REPORT INFORMATION
  Report Type: 
  Country: None (occurrence: None)
  Receive Date: 20120427
  Receipt Date: 20120413
  Transmission Date: 20120825
  Serious: Yes (Death, Hospitalization)
  Sender: FDA-Public Use
  Company Number: JP-ROCHE-1054174

PATIENT
  Sex: Male
  Weight: 48 kg

DRUGS (3)
  1. HERCEPTIN [Suspect]
     Indication: METASTATIC GASTRIC CANCER
     Route: 041
     Dates: start: 20120220, end: 20120220
  2. XELODA [Suspect]
     Indication: METASTATIC GASTRIC CANCER
     Dosage: IT IS ONE ADMINISTERING WEEKLY HOLIDAY MEDICINE FOR TWO WEEKS.
     Route: 048
     Dates: start: 20120220, end: 20120227
  3. CISPLATIN [Concomitant]
     Indication: METASTATIC GASTRIC CANCER
     Route: 041
     Dates: start: 20120220, end: 20120220

REACTIONS (4)
  - CONVULSION [None]
  - RESPIRATORY FAILURE [None]
  - ALTERED STATE OF CONSCIOUSNESS [None]
  - METASTATIC GASTRIC CANCER [None]
